FAERS Safety Report 14534586 (Version 2)
Quarter: 2024Q3

REPORT INFORMATION
  Report Type: Report from Study
  Country: FR (occurrence: FR)
  Receive Date: 20180215
  Receipt Date: 20240816
  Transmission Date: 20241016
  Serious: Yes (Death, Hospitalization, Other)
  Sender: TEVA
  Company Number: FR-TAKEDA-2016MPI009681

PATIENT
  Age: 85 Year
  Sex: Female
  Weight: 60 kg

DRUGS (9)
  1. LEVOTHYROXINE [Suspect]
     Active Substance: LEVOTHYROXINE\LEVOTHYROXINE SODIUM
     Indication: Hypothyroidism
     Dosage: UNK
     Route: 065
  2. ONDANSETRON [Suspect]
     Active Substance: ONDANSETRON
     Indication: Antibiotic therapy
     Route: 065
  3. KARDEGIC [Suspect]
     Active Substance: ASPIRIN DL-LYSINE
     Indication: Product used for unknown indication
     Route: 065
  4. GEMCITABINE [Concomitant]
     Active Substance: GEMCITABINE
     Indication: Hodgkin^s disease
     Dosage: UNK
     Route: 065
     Dates: start: 20160830, end: 20170216
  5. PIPERACILLIN SODIUM\TAZOBACTAM SODIUM [Suspect]
     Active Substance: PIPERACILLIN SODIUM\TAZOBACTAM SODIUM
     Indication: Product used for unknown indication
     Dosage: UNK
     Route: 065
  6. BRENTUXIMAB VEDOTIN [Suspect]
     Active Substance: BRENTUXIMAB VEDOTIN
     Indication: Hodgkin^s disease
     Route: 042
     Dates: start: 20160330
  7. BRENTUXIMAB VEDOTIN [Suspect]
     Active Substance: BRENTUXIMAB VEDOTIN
     Indication: Hodgkin^s disease
     Route: 042
     Dates: start: 20151217, end: 20160330
  8. RITUXIMAB [Concomitant]
     Active Substance: RITUXIMAB
     Indication: Hodgkin^s disease
     Dosage: UNK
     Route: 065
     Dates: start: 20160830, end: 20170216
  9. OXALIPLATIN [Concomitant]
     Active Substance: OXALIPLATIN
     Indication: Hodgkin^s disease
     Dosage: UNK
     Route: 065
     Dates: start: 20160830, end: 20170216

REACTIONS (17)
  - Hyperthermia [Fatal]
  - Toxicity to various agents [Fatal]
  - Pneumonia [Fatal]
  - Acute respiratory distress syndrome [Fatal]
  - Rash [Fatal]
  - Cardio-respiratory arrest [Fatal]
  - Neoplasm progression [Fatal]
  - Weight decreased [Fatal]
  - Neuropathy peripheral [Fatal]
  - Asthenia [Fatal]
  - Hyperhidrosis [Fatal]
  - Abdominal pain [Fatal]
  - Nausea [Fatal]
  - Neutropenia [Fatal]
  - Vomiting [Fatal]
  - Cardiac murmur [Fatal]
  - Tachycardia [Fatal]

NARRATIVE: CASE EVENT DATE: 20160101
